FAERS Safety Report 7914035-5 (Version None)
Quarter: 2011Q4

REPORT INFORMATION
  Report Type: 
  Country: None (occurrence: None)
  Receive Date: 20111114
  Receipt Date: 20111114
  Transmission Date: 20120403
  Serious: Yes (Hospitalization)
  Sender: FDA-Public Use
  Company Number: None

PATIENT
  Sex: Male
  Weight: 75.3 kg

DRUGS (10)
  1. AFINITOR [Suspect]
     Dosage: 280 MG
     Dates: end: 20111109
  2. LOSARTAN [Concomitant]
  3. FUROSEMIDE [Concomitant]
  4. DOCUSATE SODIUM [Concomitant]
  5. FENTANYL [Concomitant]
  6. METOPROLOL TARTRATE [Concomitant]
  7. SANDOSTATIN [Suspect]
     Dosage: 20 MG
     Dates: end: 20111013
  8. HYDROMORPHONE HCL [Concomitant]
  9. ATORVASTATIN [Concomitant]
  10. OXYBUTYNIN [Concomitant]

REACTIONS (6)
  - DISEASE PROGRESSION [None]
  - FATIGUE [None]
  - DYSPNOEA [None]
  - LIVER DISORDER [None]
  - LUNG CONSOLIDATION [None]
  - PRE-EXISTING DISEASE [None]
